FAERS Safety Report 12249569 (Version 1)
Quarter: 2016Q2

REPORT INFORMATION
  Report Type: Spontaneous
  Country: US (occurrence: None)
  Receive Date: 20160407
  Receipt Date: 20160407
  Transmission Date: 20160815
  Serious: Yes (Disabling)
  Sender: FDA-Public Use
  Company Number: None

PATIENT
  Age: 42 Year
  Sex: Male

DRUGS (2)
  1. OLD SPICE PLAYMAKER HIGH ENDURANCE [Suspect]
     Active Substance: ALUMINUM ZIRCONIUM TRICHLOROHYDREX GLY
     Dosage: 2 SWIPES PER ARM ONCE A DAY TOPICAL
     Route: 061
     Dates: end: 20160104
  2. OLD SPICE FRESH HIGH ENDURANCE [Suspect]
     Active Substance: ALUMINUM ZIRCONIUM TRICHLOROHYDREX GLY
     Dosage: 2 SWIPES PER ARM ONCE A DAY TOPICAL
     Route: 061
     Dates: end: 20160104

REACTIONS (8)
  - Wound [None]
  - Skin lesion [None]
  - Secretion discharge [None]
  - Expired product administered [None]
  - Movement disorder [None]
  - Chemical injury [None]
  - Wound secretion [None]
  - Application site reaction [None]
